FAERS Safety Report 9989240 (Version 2)
Quarter: 2014Q1

REPORT INFORMATION
  Report Type: Spontaneous
  Country: DE (occurrence: DE)
  Receive Date: 20140310
  Receipt Date: 20140324
  Transmission Date: 20141002
  Serious: Yes (Other)
  Sender: FDA-Public Use
  Company Number: DE-JNJFOC-20140303782

PATIENT
  Age: 60 Year
  Sex: Female

DRUGS (14)
  1. XARELTO [Suspect]
     Indication: CEREBROVASCULAR ACCIDENT PROPHYLAXIS
     Route: 048
     Dates: start: 20130517, end: 20130716
  2. XARELTO [Suspect]
     Indication: CEREBROVASCULAR ACCIDENT PROPHYLAXIS
     Route: 048
     Dates: start: 20130613, end: 201307
  3. XARELTO [Suspect]
     Indication: ATRIAL THROMBOSIS
     Route: 048
     Dates: start: 20130517, end: 20130716
  4. XARELTO [Suspect]
     Indication: ATRIAL THROMBOSIS
     Route: 048
     Dates: start: 20130613, end: 201307
  5. XARELTO [Suspect]
     Indication: ATRIAL FIBRILLATION
     Route: 048
     Dates: start: 20130517, end: 20130716
  6. XARELTO [Suspect]
     Indication: ATRIAL FIBRILLATION
     Route: 048
     Dates: start: 20130613, end: 201307
  7. L-THYROXIN [Concomitant]
     Route: 065
  8. VALSARTAN [Concomitant]
     Route: 065
  9. BISOPROLOL [Concomitant]
     Route: 065
  10. AMLODIPINE [Concomitant]
     Route: 065
  11. TORASEMIDE [Concomitant]
     Route: 065
  12. SIMVASTATIN [Concomitant]
     Route: 065
  13. METFORMIN [Concomitant]
     Route: 065
  14. PANTOPRAZOLE [Concomitant]
     Route: 065

REACTIONS (1)
  - Atrial thrombosis [Unknown]
